FAERS Safety Report 8830354 (Version 2)
Quarter: 2013Q1

REPORT INFORMATION
  Report Type: Spontaneous
  Country: US (occurrence: US)
  Receive Date: 20121009
  Receipt Date: 20130117
  Transmission Date: 20140127
  Serious: No
  Sender: FDA-Public Use
  Company Number: US-PFIZER INC-2012246192

PATIENT
  Age: 79 Year
  Sex: Female
  Weight: 104 kg

DRUGS (19)
  1. PREMARIN VAGINAL CREAM [Suspect]
     Indication: ATROPHIC VULVOVAGINITIS
     Dosage: UNK MG/G, 2X/DAY
     Route: 067
     Dates: start: 20120917, end: 20120930
  2. PREMARIN VAGINAL CREAM [Suspect]
     Indication: FUNGAL INFECTION
  3. CLOTRIMAZOLE [Suspect]
     Indication: FUNGAL INFECTION
     Dosage: UNK, 2X/DAY
     Dates: start: 201209, end: 2012
  4. AMLODIPINE BESILATE [Concomitant]
     Dosage: 5 MG, 1X/DAY
     Route: 048
     Dates: start: 20110801
  5. ACETYLSALICYLIC ACID [Concomitant]
     Dosage: 81 MG, UNK
     Route: 048
  6. ATORVASTATIN CALCIUM [Concomitant]
     Dosage: 20 MG, 1X/DAY
     Route: 048
     Dates: start: 20120713
  7. AZOPT [Concomitant]
     Dosage: 1 %, INSTILL 1 DROP IN TO AFFECTED EYE, 3TIMES DAILY
     Route: 047
  8. FISH OIL [Concomitant]
     Dosage: UNK
  9. ISOSORBIDE MONONITRATE [Concomitant]
     Dosage: 60 MG, 1X/DAY
     Route: 048
     Dates: start: 20091214
  10. LIPITOR [Concomitant]
     Dosage: 20 MG, 1X/DAY
     Route: 048
  11. LOSARTAN POTASSIUM [Concomitant]
     Dosage: 50 MG, 1X/DAY
     Route: 048
     Dates: start: 20111126
  12. LUMIGAN [Concomitant]
     Dosage: 0.03 %, UNK
     Route: 047
  13. METOPROLOL SUCCINATE [Concomitant]
     Dosage: 50 MG, 1X/DAY
     Route: 048
  14. NITROSTAT [Concomitant]
     Indication: CHEST PAIN
     Dosage: 0.4 MG, AS NEEDED
     Route: 060
     Dates: start: 20121109
  15. NYSTATIN [Concomitant]
     Dosage: 100000 UNITIGM EXTERNAL CREAM
  16. NYSTATIN POWDER [Concomitant]
     Dosage: APPLY TO AFFECTED AREA DAILY
     Dates: start: 20120926
  17. PREDNISOLONE ACETATE [Concomitant]
     Dosage: 1 %, SUSPENSION
     Route: 047
     Dates: start: 20110226
  18. VITAMIN D [Concomitant]
     Dosage: 2000 IU, 1X/DAY
     Route: 048
  19. NYSTATIN [Concomitant]
     Dosage: 100000 IU/G, UNK
     Dates: start: 20120926

REACTIONS (3)
  - Headache [Recovered/Resolved]
  - Feeling abnormal [Unknown]
  - Malaise [Unknown]
